FAERS Safety Report 5076406-7 (Version None)
Quarter: 2006Q3

REPORT INFORMATION
  Report Type: 
  Country: None (occurrence: None)
  Receive Date: 20060728
  Receipt Date: 20060406
  Transmission Date: 20061208
  Serious: Yes (Other)
  Sender: FDA-Public Use
  Company Number: US200604002154

PATIENT
  Age: 48 Year
  Sex: Female

DRUGS (2)
  1. STRATTERA [Suspect]
     Dosage: 80 MG
     Dates: start: 20051201, end: 20060301
  2. TOPROL-XL [Concomitant]

REACTIONS (1)
  - HYPERTENSION [None]
